FAERS Safety Report 22374152 (Version 1)
Quarter: 2023Q2

REPORT INFORMATION
  Report Type: Spontaneous
  Country: JP (occurrence: None)
  Receive Date: 20230526
  Receipt Date: 20230526
  Transmission Date: 20230721
  Serious: Yes (Death)
  Sender: FDA-Public Use
  Company Number: 2023A099262

PATIENT
  Age: 82 Year
  Sex: Male
  Weight: 64 kg

DRUGS (9)
  1. ONDEXXYA [Suspect]
     Active Substance: ANDEXANET ALFA
     Indication: Haemorrhage
     Dosage: A METHOD (400 MG IV AT 30 MG/MIN, FOLLOWED BY 480 MG IV AT 4 MG/MIN FOR 2 HOURS)880.0MG UNKNOWN
     Route: 042
     Dates: start: 20230417, end: 20230418
  2. DAPAGLIFLOZIN [Concomitant]
     Active Substance: DAPAGLIFLOZIN
     Dosage: DOSE UNKNOWN
     Route: 048
  3. ELIQUIS [Concomitant]
     Active Substance: APIXABAN
     Dosage: DOSE UNKNOWN
  4. ROSUVASTATIN [Concomitant]
     Active Substance: ROSUVASTATIN
     Dosage: DOSE UNKNOWN
  5. CANDESARTAN [Concomitant]
     Active Substance: CANDESARTAN
     Dosage: DOSE UNKNOWN
  6. AZOSEMIDE [Concomitant]
     Active Substance: AZOSEMIDE
     Dosage: DOSE UNKNOWN
  7. LANSOPRAZOLE [Concomitant]
     Active Substance: LANSOPRAZOLE
     Dosage: DOSE UNKNOWN
  8. PIPERACILLIN SODIUM [Concomitant]
     Active Substance: PIPERACILLIN SODIUM
     Dosage: DOSE UNKNOWN
  9. HEPARIN SODIUM [Concomitant]
     Active Substance: HEPARIN SODIUM
     Dosage: DOSE UNKNOWN

REACTIONS (2)
  - Cardiogenic shock [Fatal]
  - Low cardiac output syndrome [Fatal]

NARRATIVE: CASE EVENT DATE: 20230418
